FAERS Safety Report 4902636-8 (Version None)
Quarter: 2006Q1

REPORT INFORMATION
  Report Type: 
  Country: None (occurrence: None)
  Receive Date: 20060207
  Receipt Date: 20050802
  Transmission Date: 20060701
  Serious: Yes (Other)
  Sender: FDA-Public Use
  Company Number: PHEH2005US08545

PATIENT
  Age: 74 Year
  Sex: Male

DRUGS (3)
  1. ZOMETA [Suspect]
     Indication: MULTIPLE MYELOMA
     Dosage: 4 MG QMONTH
     Dates: start: 20050207, end: 20050726
  2. THALIDOMIDE [Concomitant]
  3. DECADRON /CAN/ [Concomitant]
     Dosage: 40 MG, QD X 4DAYS, Q28DAYS

REACTIONS (12)
  - BONE DISORDER [None]
  - FISTULA [None]
  - GINGIVAL DISORDER [None]
  - GINGIVAL INFECTION [None]
  - GINGIVAL SWELLING [None]
  - GINGIVITIS [None]
  - LYMPHADENOPATHY [None]
  - OSTEOMYELITIS [None]
  - OSTEONECROSIS [None]
  - PAIN [None]
  - SOFT TISSUE INFECTION [None]
  - TOOTH DISORDER [None]
